FAERS Safety Report 5157545-9 (Version None)
Quarter: 2006Q4

REPORT INFORMATION
  Report Type: 
  Country: None (occurrence: None)
  Receive Date: 20061127
  Receipt Date: 20061121
  Transmission Date: 20070319
  Serious: Yes (Death)
  Sender: FDA-Public Use
  Company Number: UG-GLAXOSMITHKLINE-B0447665A

PATIENT
  Age: 2 Year
  Sex: Male
  Weight: 10.1 kg

DRUGS (6)
  1. ALBENDAZOLE [Suspect]
     Indication: HELMINTHIC INFECTION
     Route: 048
     Dates: start: 20050303, end: 20051205
  2. ALBENDAZOLE [Suspect]
     Dosage: 400MG SINGLE DOSE
  3. PRAZIQUANTEL [Suspect]
     Indication: HELMINTHIC INFECTION
     Dosage: 40MGK SINGLE DOSE
  4. NYSTATIN SYRUP [Concomitant]
     Indication: ORAL CANDIDIASIS
  5. ACETAMINOPHEN [Concomitant]
  6. COUGH LINCTUS [Concomitant]

REACTIONS (2)
  - DEATH [None]
  - DRUG EXPOSURE DURING PREGNANCY [None]
